FAERS Safety Report 7860719-7 (Version None)
Quarter: 2011Q4

REPORT INFORMATION
  Report Type: 
  Country: None (occurrence: None)
  Receive Date: 20111027
  Receipt Date: 20111012
  Transmission Date: 20120403
  Serious: Yes (Other)
  Sender: FDA-Public Use
  Company Number: US-BAYER-2011-053104

PATIENT
  Age: 18 Year
  Sex: Female
  Weight: 118 kg

DRUGS (8)
  1. ANTIBIOTICS [Concomitant]
  2. GABAPENTIN [Concomitant]
  3. YAZ [Suspect]
     Indication: ACNE
     Dosage: UNK
     Dates: start: 20060101, end: 20090101
  4. ALBUTEROL INHALER [Concomitant]
  5. LIPITOR [Concomitant]
  6. IBUPROFEN [Concomitant]
     Indication: HEADACHE
     Dosage: 200 MG
  7. CABLERONE [Concomitant]
     Indication: BRAIN NEOPLASM
     Dosage: UNK
     Dates: start: 20060101
  8. YAZ [Suspect]
     Indication: BRAIN NEOPLASM

REACTIONS (5)
  - CHOLECYSTITIS CHRONIC [None]
  - INJURY [None]
  - PAIN [None]
  - BILIARY COLIC [None]
  - GALLBLADDER DISORDER [None]
